FAERS Safety Report 5657719-4 (Version None)
Quarter: 2008Q1

REPORT INFORMATION
  Report Type: 
  Country: None (occurrence: None)
  Receive Date: 20080310
  Receipt Date: 20080305
  Transmission Date: 20080703
  Serious: Yes (Hospitalization)
  Sender: FDA-Public Use
  Company Number: US-BOEHRINGER INGELHEIM GMBH, GERMANY-2008-BP-02482BP

PATIENT
  Sex: Male

DRUGS (4)
  1. COMBIVENT [Suspect]
     Indication: CHRONIC OBSTRUCTIVE PULMONARY DISEASE
     Route: 055
     Dates: start: 20080218
  2. ROCEPHIN [Concomitant]
     Route: 042
     Dates: start: 20080216, end: 20080219
  3. RESTORIL [Concomitant]
     Dates: start: 20080216, end: 20080219
  4. RESITAN [Concomitant]
     Dates: start: 20080216, end: 20080219

REACTIONS (4)
  - BRONCHITIS BACTERIAL [None]
  - CHRONIC OBSTRUCTIVE PULMONARY DISEASE [None]
  - DRUG INEFFECTIVE [None]
  - DYSGEUSIA [None]
